FAERS Safety Report 15869836 (Version 5)
Quarter: 2023Q1

REPORT INFORMATION
  Report Type: Spontaneous
  Country: FR (occurrence: FR)
  Receive Date: 20190125
  Receipt Date: 20230322
  Transmission Date: 20230417
  Serious: Yes (Death, Life-Threatening, Hospitalization, Disabling, Other)
  Sender: FDA-Public Use
  Company Number: PHHY2019FR016739

PATIENT
  Age: 27 Year
  Sex: Female
  Weight: 55 kg

DRUGS (16)
  1. OMEPRAZOLE [Suspect]
     Active Substance: OMEPRAZOLE
     Indication: Dyspepsia
     Dosage: 1 DOSAGE FORM, QD
     Route: 048
     Dates: start: 20160728
  2. FLAGYL [Suspect]
     Active Substance: METRONIDAZOLE\METRONIDAZOLE HYDROCHLORIDE
     Indication: Gingivitis ulcerative
     Dosage: 1 G,QD
     Route: 048
     Dates: start: 20160721, end: 20160729
  3. FLAGYL [Suspect]
     Active Substance: METRONIDAZOLE\METRONIDAZOLE HYDROCHLORIDE
     Dosage: UNK
     Route: 065
  4. ACETAMINOPHEN [Concomitant]
     Active Substance: ACETAMINOPHEN
     Indication: Product used for unknown indication
     Dosage: UNK
     Route: 065
     Dates: start: 20160721
  5. PAROEX [Concomitant]
     Active Substance: CHLORHEXIDINE GLUCONATE
     Indication: Product used for unknown indication
     Dosage: UNK
     Route: 065
     Dates: start: 20160721
  6. ETHINYL ESTRADIOL\LEVONORGESTREL [Concomitant]
     Active Substance: ETHINYL ESTRADIOL\LEVONORGESTREL
     Indication: Product used for unknown indication
     Dosage: 0.1 MG/0.02 MG,
     Route: 048
     Dates: start: 2014
  7. CLOTIAZEPAM [Concomitant]
     Active Substance: CLOTIAZEPAM
     Indication: Partner stress
     Dosage: 5 MG
     Route: 065
  8. AMITRIPTYLINE HYDROCHLORIDE [Concomitant]
     Active Substance: AMITRIPTYLINE HYDROCHLORIDE
     Indication: Product used for unknown indication
     Dosage: 7 DOSAGE FORM, QD (7 DROPS AT BEDTIME)
     Route: 065
  9. ALPRAZOLAM [Concomitant]
     Active Substance: ALPRAZOLAM
     Indication: Product used for unknown indication
     Dosage: UNK (1 TABLET MORNING AND NOON AND 2 TABLETS IN THE EVENING IF ANXIOUS)
     Route: 065
  10. TEGRETOL [Concomitant]
     Active Substance: CARBAMAZEPINE
     Indication: Product used for unknown indication
     Dosage: UNK
     Route: 065
  11. CYMBALTA [Concomitant]
     Active Substance: DULOXETINE HYDROCHLORIDE
     Indication: Product used for unknown indication
     Dosage: UNK
     Route: 065
  12. DOLIPRANE [Concomitant]
     Active Substance: ACETAMINOPHEN
     Indication: Product used for unknown indication
     Dosage: 1 DOSAGE FORM, Q4H (1 TABLET IN EVERY 6 HOURS IF PAIN IS PRESENT)
     Route: 065
  13. ZOLOFT [Concomitant]
     Active Substance: SERTRALINE HYDROCHLORIDE
     Indication: Product used for unknown indication
     Dosage: UNK
     Route: 065
  14. GABAPENTIN [Concomitant]
     Active Substance: GABAPENTIN
     Indication: Product used for unknown indication
     Dosage: 1200 MG, QD,(400 MG : 1 CAPSULE MORNING, NOON AND EVENING)
     Route: 065
  15. LYRICA [Concomitant]
     Active Substance: PREGABALIN
     Indication: Product used for unknown indication
     Dosage: UNK
     Route: 065
  16. SERTRALINE [Concomitant]
     Active Substance: SERTRALINE HYDROCHLORIDE
     Indication: Product used for unknown indication
     Dosage: 1 DOSAGE FORM, QD (1 CAPSULE IN THE MORNING)
     Route: 065

REACTIONS (40)
  - Completed suicide [Fatal]
  - Inappropriate schedule of product administration [Fatal]
  - Suicide attempt [Unknown]
  - Paraplegia [Recovered/Resolved with Sequelae]
  - Suicide attempt [Recovered/Resolved with Sequelae]
  - Suicidal ideation [Unknown]
  - Major depression [Unknown]
  - Internal fixation of fracture [Unknown]
  - Micturition disorder [Recovered/Resolved with Sequelae]
  - Decreased appetite [Recovered/Resolved]
  - Feeling abnormal [Unknown]
  - Anorectal disorder [Recovered/Resolved with Sequelae]
  - Neuralgia [Recovered/Resolved with Sequelae]
  - Dyspepsia [Unknown]
  - Obsessive thoughts [Unknown]
  - Affective disorder [Unknown]
  - Feeling of despair [Unknown]
  - Nightmare [Unknown]
  - Disturbance in attention [Unknown]
  - Fatigue [Unknown]
  - Anxiety [Unknown]
  - Decreased appetite [Unknown]
  - Insomnia [Recovered/Resolved]
  - Vertigo [Unknown]
  - Confusional state [Unknown]
  - Tooth disorder [Unknown]
  - Meningorrhagia [Unknown]
  - Cervical vertebral fracture [Unknown]
  - Pneumothorax [Unknown]
  - Asthenia [Unknown]
  - Neuralgia [Unknown]
  - Hypertonic bladder [Unknown]
  - Merycism [Unknown]
  - Emphysema [Unknown]
  - Hypotonia [Unknown]
  - Eschar [Unknown]
  - Toxicity to various agents [Unknown]
  - Abdominal pain [Unknown]
  - Nausea [Unknown]
  - Somnolence [Unknown]

NARRATIVE: CASE EVENT DATE: 20160701
